FAERS Safety Report 15505528 (Version 2)
Quarter: 2018Q4

REPORT INFORMATION
  Report Type: Spontaneous
  Country: US (occurrence: US)
  Receive Date: 20181016
  Receipt Date: 20181207
  Transmission Date: 20190205
  Serious: Yes (Disabling, Other)
  Sender: FDA-Public Use
  Company Number: US-009507513-1810USA003045

PATIENT
  Sex: Male

DRUGS (8)
  1. CELEBREX [Suspect]
     Active Substance: CELECOXIB
     Indication: SPINAL OSTEOARTHRITIS
     Dosage: 200 MG, QD
     Route: 048
     Dates: start: 2018
  2. CLOPIDOGREL BISULFATE. [Concomitant]
     Active Substance: CLOPIDOGREL BISULFATE
     Indication: ANTICOAGULANT THERAPY
     Dosage: 75 MG, QD
     Route: 048
     Dates: start: 1998
  3. METOPROLOL SUCCINATE. [Concomitant]
     Active Substance: METOPROLOL SUCCINATE
     Indication: CARDIAC DISORDER
     Dosage: 100 MG, QD
     Route: 048
     Dates: start: 1993
  4. VITAMINS (UNSPECIFIED) [Concomitant]
     Active Substance: VITAMINS
     Dosage: TABLET, 1 BY MOUTH ONCE A DAY
     Route: 048
  5. ZOCOR [Suspect]
     Active Substance: SIMVASTATIN
     Indication: BLOOD CHOLESTEROL
     Dosage: 40 MG, UNK
     Route: 048
     Dates: end: 2018
  6. OMEGA-3 MARINE TRIGLYCERIDES [Concomitant]
     Active Substance: FISH OIL
     Dosage: 1OOOMG CAPSULE, TWICE A DAY, ONE IN THE MORNING AND ONE IN THE EVENING
     Route: 048
  7. PANTOPRAZOLE SODIUM. [Concomitant]
     Active Substance: PANTOPRAZOLE SODIUM
     Indication: PRODUCT USED FOR UNKNOWN INDICATION
     Dosage: 40 MG, QD
     Route: 048
  8. WARFARIN [Concomitant]
     Active Substance: WARFARIN
     Indication: ANTICOAGULANT THERAPY
     Dosage: 2 TABLETS BY MOUTH AT 5PM
     Route: 048
     Dates: start: 2012

REACTIONS (9)
  - Prostatomegaly [Unknown]
  - Spinal osteoarthritis [Not Recovered/Not Resolved]
  - Blood cholesterol increased [Recovered/Resolved]
  - Cardiac pacemaker insertion [Unknown]
  - Blood potassium decreased [Unknown]
  - Drug ineffective [Unknown]
  - Vitamin B12 deficiency [Unknown]
  - Blood calcium decreased [Unknown]
  - Thyroid disorder [Unknown]

NARRATIVE: CASE EVENT DATE: 2017
